FAERS Safety Report 8816648 (Version 1)
Quarter: 2012Q4

REPORT INFORMATION
  Report Type: Spontaneous
  Country: FR (occurrence: None)
  Receive Date: 20120928
  Receipt Date: 20120928
  Transmission Date: 20130627
  Serious: Yes (Death, Life-Threatening, Hospitalization)
  Sender: FDA-Public Use
  Company Number: 2012CP000115

PATIENT
  Age: 64 Year
  Sex: Male

DRUGS (4)
  1. PERFALGAN [Suspect]
     Route: 042
  2. ACTISKENAN [Suspect]
     Route: 048
  3. CIPROFLOXACIN (CIPROFLOXACIN) [Suspect]
     Dates: start: 20120402
  4. DUROGESIC [Suspect]
     Dosage: 1 dosage form; TD
     Dates: start: 20120330, end: 20120401

REACTIONS (7)
  - Cognitive disorder [None]
  - Accidental overdose [None]
  - Hepatitis [None]
  - Renal failure [None]
  - Acute pulmonary oedema [None]
  - Hyperhidrosis [None]
  - Livedo reticularis [None]
